FAERS Safety Report 9290794 (Version 4)
Quarter: 2013Q3

REPORT INFORMATION
  Report Type: Spontaneous
  Country: JP (occurrence: JP)
  Receive Date: 20130515
  Receipt Date: 20130703
  Transmission Date: 20140515
  Serious: Yes (Life-Threatening, Hospitalization, Disabling)
  Sender: FDA-Public Use
  Company Number: JP-B.I. PHARMACEUTICALS,INC./RIDGEFIELD-2013-BI-13421NB

PATIENT
  Age: 80 Year
  Sex: Female
  Weight: 60 kg

DRUGS (6)
  1. PRAZAXA [Suspect]
     Indication: ATRIAL FIBRILLATION
     Dosage: 220 MG
     Route: 048
     Dates: start: 201107
  2. FLUITRAN [Concomitant]
     Indication: HYPERTENSION
     Dosage: 1 MG
     Route: 048
     Dates: start: 1989
  3. DIOVAN [Concomitant]
     Indication: HYPERTENSION
     Dosage: 80 MG
     Route: 048
     Dates: start: 1989
  4. PERDIPINE LA [Concomitant]
     Indication: HYPERTENSION
     Dosage: 40 MG
     Route: 048
     Dates: start: 1989
  5. LIVALO [Concomitant]
     Indication: HYPERLIPIDAEMIA
     Dosage: 1 MG
     Route: 048
  6. NEUER [Concomitant]
     Indication: GASTRITIS
     Dosage: 600 MG
     Route: 048

REACTIONS (2)
  - Cerebral infarction [Recovered/Resolved with Sequelae]
  - Drug ineffective [Unknown]
